FAERS Safety Report 14811572 (Version 1)
Quarter: 2018Q2

REPORT INFORMATION
  Report Type: Report from Study
  Country: US (occurrence: US)
  Receive Date: 20180425
  Receipt Date: 20180425
  Transmission Date: 20180711
  Serious: No
  Sender: FDA-Public Use
  Company Number: US-AMGEN-USASL2018042510

PATIENT
  Sex: Female

DRUGS (1)
  1. REPATHA [Suspect]
     Active Substance: EVOLOCUMAB
     Indication: LOW DENSITY LIPOPROTEIN ABNORMAL
     Dosage: 140 MG, Q2WK
     Route: 065

REACTIONS (6)
  - Cough [Recovering/Resolving]
  - Sinus disorder [Unknown]
  - Fatigue [Unknown]
  - Throat irritation [Unknown]
  - Nasal congestion [Unknown]
  - Back pain [Unknown]

NARRATIVE: CASE EVENT DATE: 2018
